FAERS Safety Report 10035161 (Version 1)
Quarter: 2014Q1

REPORT INFORMATION
  Report Type: Spontaneous
  Country: US (occurrence: US)
  Receive Date: 20140325
  Receipt Date: 20140325
  Transmission Date: 20141002
  Serious: Yes (Death)
  Sender: FDA-Public Use
  Company Number: US-B.I. PHARMACEUTICALS,INC./RIDGEFIELD-2014-BI-12686BP

PATIENT
  Age: 80 Year
  Sex: Female

DRUGS (4)
  1. PRADAXA [Suspect]
     Indication: ATRIAL FIBRILLATION
     Dosage: 300 MG
     Route: 048
  2. DIAZEPAM [Concomitant]
     Dosage: 180 MG
     Route: 065
  3. HYDROCHLOROTHIAZIDE [Concomitant]
     Dosage: 240 MG
     Route: 065
  4. CARDIZEM [Concomitant]
     Dosage: 240 MG
     Route: 065

REACTIONS (1)
  - Cerebral haemorrhage [Fatal]
